FAERS Safety Report 5731145-1 (Version None)
Quarter: 2008Q2

REPORT INFORMATION
  Report Type: 
  Country: None (occurrence: None)
  Receive Date: 20080505
  Receipt Date: 20080419
  Transmission Date: 20081010
  Serious: Yes (Death)
  Sender: FDA-Public Use
  Company Number: 8030248

PATIENT
  Age: 57 Year
  Sex: Female

DRUGS (3)
  1. LEVETIRACETAM [Suspect]
     Indication: EPILEPSY
     Dosage: 500 MG 1/D PO
     Route: 048
     Dates: start: 20080101, end: 20080221
  2. DEPAKENE [Concomitant]
  3. LADOSE [Concomitant]

REACTIONS (1)
  - MYOCARDIAL ISCHAEMIA [None]
